FAERS Safety Report 8600440-0 (Version None)
Quarter: 2012Q3

REPORT INFORMATION
  Report Type: 
  Country: None (occurrence: None)
  Receive Date: 20120817
  Receipt Date: 20120813
  Transmission Date: 20120928
  Serious: No
  Sender: FDA-Public Use
  Company Number: US-PFIZER INC-2012198510

PATIENT
  Sex: Female
  Weight: 72.562 kg

DRUGS (2)
  1. HUMULIN 70/30 [Concomitant]
     Indication: DIABETES MELLITUS
     Dosage: UNK, 2X/DAY
  2. PREMARIN [Suspect]
     Indication: BONE DISORDER
     Dosage: 0.625 MG, 1X/DAY
     Route: 048

REACTIONS (1)
  - HYPERTENSION [None]
